FAERS Safety Report 21023583 (Version 1)
Quarter: 2022Q2

REPORT INFORMATION
  Report Type: Spontaneous
  Country: US (occurrence: US)
  Receive Date: 20220629
  Receipt Date: 20220629
  Transmission Date: 20220720
  Serious: No
  Sender: FDA-Public Use
  Company Number: US-GLAXOSMITHKLINE-US2022AMR098170

PATIENT
  Sex: Male

DRUGS (2)
  1. ATOVAQUONE\PROGUANIL HYDROCHLORIDE [Suspect]
     Active Substance: ATOVAQUONE\PROGUANIL HYDROCHLORIDE
     Indication: Product used for unknown indication
     Dosage: 1 DF  250MG/100MG, 24
  2. ATOVAQUONE\PROGUANIL HYDROCHLORIDE [Suspect]
     Active Substance: ATOVAQUONE\PROGUANIL HYDROCHLORIDE
     Dosage: 3 DF  250MG/100MG, 24

REACTIONS (3)
  - Headache [Not Recovered/Not Resolved]
  - Eye pain [Not Recovered/Not Resolved]
  - Fatigue [Not Recovered/Not Resolved]

NARRATIVE: CASE EVENT DATE: 20140801
